FAERS Safety Report 4582636-0 (Version None)
Quarter: 2005Q1

REPORT INFORMATION
  Report Type: 
  Country: None (occurrence: None)
  Receive Date: 20050125
  Receipt Date: 20041115
  Transmission Date: 20050727
  Serious: No
  Sender: FDA-Public Use
  Company Number: US_0411108396

PATIENT
  Age: 77 Year
  Sex: Female
  Weight: 36 kg

DRUGS (1)
  1. FORTEO [Suspect]
     Indication: OSTEOPOROSIS
     Dosage: 20 UG/1 DAY
     Dates: start: 20041017

REACTIONS (5)
  - ANOREXIA [None]
  - APATHY [None]
  - DYSKINESIA [None]
  - MOVEMENT DISORDER [None]
  - SALIVA ALTERED [None]
